FAERS Safety Report 25896301 (Version 1)
Quarter: 2025Q4

REPORT INFORMATION
  Report Type: Spontaneous
  Country: US (occurrence: None)
  Receive Date: 20251008
  Receipt Date: 20251008
  Transmission Date: 20260117
  Serious: Yes (Disabling, Other)
  Sender: FDA-CTU
  Company Number: None

PATIENT
  Age: 31 Year
  Sex: Female
  Weight: 58.5 kg

DRUGS (9)
  1. QELBREE [Suspect]
     Active Substance: VILOXAZINE HYDROCHLORIDE
     Indication: Attention deficit hyperactivity disorder
     Route: 048
     Dates: start: 20250819
  2. VYVANSE [Concomitant]
     Active Substance: LISDEXAMFETAMINE DIMESYLATE
  3. ALLEGRA ALLERGY [Concomitant]
     Active Substance: FEXOFENADINE HYDROCHLORIDE
  4. TOPAMAX [Concomitant]
     Active Substance: TOPIRAMATE
  5. NURTEC ODT [Concomitant]
     Active Substance: RIMEGEPANT SULFATE
  6. RIZATRIPTAN [Concomitant]
     Active Substance: RIZATRIPTAN
  7. Sumatriotan [Concomitant]
  8. Ondanseteron [Concomitant]
  9. MAGNESIUM GLYCINATE [Concomitant]
     Active Substance: MAGNESIUM GLYCINATE

REACTIONS (22)
  - Insomnia [None]
  - Poor quality sleep [None]
  - Dry mouth [None]
  - Dehydration [None]
  - Tonsillolith [None]
  - Headache [None]
  - Anxiety [None]
  - Mood swings [None]
  - Migraine [None]
  - Urticaria [None]
  - Irritability [None]
  - Panic attack [None]
  - Crying [None]
  - Impaired work ability [None]
  - Vision blurred [None]
  - Diplopia [None]
  - Disturbance in attention [None]
  - Visual acuity reduced [None]
  - Frustration tolerance decreased [None]
  - Impulse-control disorder [None]
  - Treatment failure [None]
  - Vomiting [None]

NARRATIVE: CASE EVENT DATE: 20250819
